FAERS Safety Report 5363329-9 (Version None)
Quarter: 2007Q2

REPORT INFORMATION
  Report Type: 
  Country: None (occurrence: None)
  Receive Date: 20070618
  Receipt Date: 20070612
  Transmission Date: 20071010
  Serious: Yes (Hospitalization)
  Sender: FDA-Public Use
  Company Number: GXKR2007DE04986

PATIENT
  Age: 64 Year
  Sex: Male

DRUGS (17)
  1. BISOHEXAL (NGX)(BISOPROLOL) FILM-COATED TABLET [Suspect]
     Dosage: 10 MG DAILY, ORAL
     Route: 048
  2. ESIDRIX [Suspect]
     Dosage: 12.5 MG DAILY, ORAL
     Route: 048
  3. MIRTAZAPINE [Suspect]
     Dosage: 15 MG DAILY, ORAL
     Route: 048
  4. ATACAND [Suspect]
     Dosage: 16 MG DAILY, ORAL
     Route: 048
  5. NORVASC [Suspect]
     Dosage: 5 MG DAILY, ORAL
     Route: 048
  6. LYRICA [Suspect]
     Dosage: SEE IMAGE
     Route: 048
     Dates: start: 20061229, end: 20061230
  7. LYRICA [Suspect]
     Dosage: SEE IMAGE
     Route: 048
     Dates: start: 20061231
  8. CYMBALTA [Suspect]
     Dosage: SEE IMAGE
     Route: 048
     Dates: start: 20070105, end: 20070107
  9. CYMBALTA [Suspect]
     Dosage: SEE IMAGE
     Route: 048
     Dates: start: 20070108, end: 20070110
  10. ASPIRIN [Concomitant]
  11. PLAVIX [Concomitant]
  12. SIMVAHEXAL (SIMVASTATIN) [Concomitant]
  13. MOLSIDOMINE (MOLSIDOMINE) [Concomitant]
  14. PANTOZOL (PANTOPRAZOLE SODIUM) [Concomitant]
  15. PENTAERYTHIRITOL TETRANITRATE TAB [Concomitant]
  16. DECORTIN (PREDNISONE) [Concomitant]
  17. VIGANTOLETTEN (COLECALCIFEROL) [Concomitant]

REACTIONS (4)
  - BLOOD PRESSURE DECREASED [None]
  - CARDIOVASCULAR INSUFFICIENCY [None]
  - DIZZINESS [None]
  - SYNCOPE [None]
